FAERS Safety Report 14292157 (Version 1)
Quarter: 2017Q4

REPORT INFORMATION
  Report Type: Spontaneous
  Country: US (occurrence: US)
  Receive Date: 20171215
  Receipt Date: 20171215
  Transmission Date: 20180321
  Serious: No
  Sender: FDA-Public Use
  Company Number: US-PERRIGO-17US000842

PATIENT
  Sex: Female

DRUGS (2)
  1. TIOCONAZOLE. [Suspect]
     Active Substance: TIOCONAZOLE
     Indication: VULVOVAGINAL PRURITUS
  2. TIOCONAZOLE. [Suspect]
     Active Substance: TIOCONAZOLE
     Indication: VULVOVAGINAL MYCOTIC INFECTION
     Dosage: UNK, SINGLE
     Route: 067
     Dates: start: 20170117, end: 20170117

REACTIONS (6)
  - Vulvovaginal discomfort [Not Recovered/Not Resolved]
  - Vulvovaginal swelling [Recovering/Resolving]
  - Underdose [Recovered/Resolved]
  - Drug effect incomplete [Unknown]
  - Vulvovaginal pain [Unknown]
  - Vulvovaginal burning sensation [Unknown]

NARRATIVE: CASE EVENT DATE: 20170117
